FAERS Safety Report 16897030 (Version 6)
Quarter: 2020Q1

REPORT INFORMATION
  Report Type: Report from Study
  Country: None (occurrence: ES)
  Receive Date: 20191009
  Receipt Date: 20200330
  Transmission Date: 20200409
  Serious: Yes (Hospitalization, Other)
  Sender: FDA-Public Use
  Company Number: ES-ABBVIE-19K-144-2933362-00

PATIENT
  Age: 78 Year
  Sex: Male

DRUGS (3)
  1. DUODOPA [Suspect]
     Active Substance: CARBIDOPA\LEVODOPA
     Indication: PARKINSON^S DISEASE
     Route: 050
     Dates: start: 20150729, end: 2019
  2. DUODOPA [Suspect]
     Active Substance: CARBIDOPA\LEVODOPA
     Route: 050
     Dates: start: 2019, end: 2019
  3. SINEMET PLUS [Suspect]
     Active Substance: CARBIDOPA\LEVODOPA
     Indication: PRODUCT USED FOR UNKNOWN INDICATION
     Route: 048
     Dates: start: 20191104

REACTIONS (10)
  - Anaemia [Unknown]
  - Embedded device [Recovered/Resolved with Sequelae]
  - Post procedural haematoma [Not Recovered/Not Resolved]
  - Postoperative wound infection [Recovered/Resolved]
  - Medical device pain [Recovered/Resolved with Sequelae]
  - Device issue [Unknown]
  - Wound dehiscence [Unknown]
  - Procedural complication [Unknown]
  - Procedural haemorrhage [Unknown]
  - Feeling abnormal [Unknown]

NARRATIVE: CASE EVENT DATE: 20190915
